FAERS Safety Report 9205413 (Version 1)
Quarter: 2013Q2

REPORT INFORMATION
  Report Type: Spontaneous
  Country: US (occurrence: US)
  Receive Date: 20130402
  Receipt Date: 20130402
  Transmission Date: 20140414
  Serious: No
  Sender: FDA-Public Use
  Company Number: US-009507513-1304USA000661

PATIENT
  Age: 60 Year
  Sex: Female

DRUGS (1)
  1. DULERA [Suspect]
     Dosage: UNK

REACTIONS (2)
  - Muscular weakness [Unknown]
  - Arthralgia [Unknown]
